FAERS Safety Report 8764825 (Version 1)
Quarter: 2012Q4

REPORT INFORMATION
  Report Type: Report from Study
  Country: DE (occurrence: DE)
  Receive Date: 20120831
  Receipt Date: 20120831
  Transmission Date: 20130627
  Serious: Yes (Death, Hospitalization)
  Sender: FDA-Public Use
  Company Number: DE-ROCHE-1108575

PATIENT
  Sex: Female
  Weight: 40 kg

DRUGS (5)
  1. AVASTIN [Suspect]
     Indication: BREAST CANCER
     Dosage: 2 ND CYCLE STARTED ON 03 AUG 2012
     Route: 042
  2. PACLITAXEL [Suspect]
     Indication: BREAST CANCER
     Dosage: 2 ND CYCLE STARTED ON 10 AUG 2012
     Route: 042
  3. RANITIDIN [Concomitant]
     Indication: VOMITING
     Route: 042
  4. CLEMASTIN [Concomitant]
     Indication: VOMITING
     Route: 042
  5. DEXAMETHASON [Concomitant]
     Indication: VOMITING
     Route: 042

REACTIONS (4)
  - Cardiac failure [Fatal]
  - General physical health deterioration [Fatal]
  - Diarrhoea [Unknown]
  - Abdominal pain upper [Unknown]
